FAERS Safety Report 9926258 (Version 1)
Quarter: 2014Q1

REPORT INFORMATION
  Report Type: Spontaneous
  Country: US (occurrence: US)
  Receive Date: 20140226
  Receipt Date: 20140226
  Transmission Date: 20141002
  Serious: No
  Sender: FDA-Public Use
  Company Number: US-AMGEN-USASP2013082721

PATIENT
  Age: 27 Year
  Sex: Male

DRUGS (8)
  1. ENBREL [Suspect]
     Indication: RHEUMATOID ARTHRITIS
     Dosage: 50 MG, WEEKLY TOOK ONLY 1 DOSE
     Route: 058
  2. ENBREL [Suspect]
     Indication: ANKYLOSING SPONDYLITIS
  3. HUMIRA [Suspect]
     Indication: RHEUMATOID ARTHRITIS
     Dosage: 40 MG, UNK TOOK ONLY 1 DOSE
     Route: 058
  4. HUMIRA [Suspect]
     Indication: ANKYLOSING SPONDYLITIS
  5. XELJANZ [Suspect]
     Indication: RHEUMATOID ARTHRITIS
     Dosage: 5 MG, BID TOOK ONLY TWO TABLETS ONLY
     Route: 065
  6. MTX                                /00113801/ [Concomitant]
     Dosage: UNK
  7. SULFASALAZINE [Concomitant]
     Dosage: UNK
  8. ARAVA [Concomitant]
     Dosage: UNK

REACTIONS (2)
  - Drug intolerance [Unknown]
  - Neuropathy peripheral [Recovered/Resolved]
